FAERS Safety Report 4985741-X (Version None)
Quarter: 2006Q2

REPORT INFORMATION
  Report Type: 
  Country: None (occurrence: None)
  Receive Date: 20060421
  Receipt Date: 20060412
  Transmission Date: 20061013
  Serious: Yes (Other)
  Sender: FDA-Public Use
  Company Number: 2006EN000104

PATIENT
  Age: 11 Year
  Sex: Female

DRUGS (8)
  1. ABELCET [Suspect]
     Indication: LUNG INFECTION
     Dosage: 75 MG, UNKNOWN; IV
     Route: 042
     Dates: start: 20060316, end: 20060316
  2. ABELCET [Suspect]
     Indication: PNEUMONIA
     Dosage: 75 MG, UNKNOWN; IV
     Route: 042
     Dates: start: 20060316, end: 20060316
  3. TEICOPLANIN [Concomitant]
  4. TOBRAMYCIN [Concomitant]
  5. MERREM [Concomitant]
  6. GRANULOKINE [Concomitant]
  7. BACTRIM [Concomitant]
  8. ANTIPYRETICS [Concomitant]

REACTIONS (6)
  - CHILLS [None]
  - HEADACHE [None]
  - HYPOTENSION [None]
  - INFUSION RELATED REACTION [None]
  - PALLOR [None]
  - VOMITING [None]
